FAERS Safety Report 8931544 (Version 1)
Quarter: 2012Q4

REPORT INFORMATION
  Report Type: 
  Country: DE (occurrence: DE)
  Receive Date: 20121128
  Receipt Date: 20121128
  Transmission Date: 20130627
  Serious: Yes (Other)
  Sender: FDA-Public Use
  Company Number: DE-ACTELION-A-CH2012-75366

PATIENT
  Age: 12 Year
  Sex: Female

DRUGS (1)
  1. ZAVESCA [Suspect]
     Indication: NIEMANN-PICK DISEASE
     Route: 048

REACTIONS (3)
  - Epilepsy [Unknown]
  - Niemann-Pick disease [Unknown]
  - Disease progression [Unknown]
